FAERS Safety Report 8264443-0 (Version None)
Quarter: 2012Q2

REPORT INFORMATION
  Report Type: 
  Country: None (occurrence: None)
  Receive Date: 20120406
  Receipt Date: 20120405
  Transmission Date: 20120825
  Serious: No
  Sender: FDA-Public Use
  Company Number: US-PFIZER INC-2012086577

PATIENT
  Sex: Female
  Weight: 104 kg

DRUGS (3)
  1. NICOTROL [Suspect]
     Indication: SMOKING CESSATION THERAPY
     Dosage: 10 MG, UNK
     Dates: start: 20120405
  2. ZOLOFT [Concomitant]
     Indication: ANXIETY
     Dosage: 100 MG, DAILY
     Dates: start: 20080101
  3. DEXILANT [Concomitant]
     Indication: GASTROOESOPHAGEAL REFLUX DISEASE
     Dosage: 50 MG, DAILY
     Dates: start: 20100101

REACTIONS (1)
  - BURNING SENSATION [None]
